FAERS Safety Report 5636017-9 (Version None)
Quarter: 2008Q1

REPORT INFORMATION
  Report Type: 
  Country: None (occurrence: None)
  Receive Date: 20080220
  Receipt Date: 20080220
  Transmission Date: 20080703
  Serious: Yes (Other)
  Sender: FDA-Public Use
  Company Number: None

PATIENT
  Age: 25 Year
  Sex: Female
  Weight: 101.6057 kg

DRUGS (1)
  1. MIRENA [Suspect]

REACTIONS (3)
  - DEVICE MIGRATION [None]
  - PELVIC PAIN [None]
  - UTERINE RUPTURE [None]
